FAERS Safety Report 5737005-4 (Version None)
Quarter: 2008Q2

REPORT INFORMATION
  Report Type: 
  Country: None (occurrence: None)
  Receive Date: 20080512
  Receipt Date: 20080512
  Transmission Date: 20081010
  Serious: Yes (Life-Threatening, Hospitalization, Disabling)
  Sender: FDA-Public Use
  Company Number: None

PATIENT
  Sex: Female
  Weight: 63.5036 kg

DRUGS (1)
  1. EVISTA [Suspect]
     Indication: BONE DENSITY DECREASED
     Dosage: 1 TABLET A DAY ONCE A DAY
     Dates: start: 20080303, end: 20080308

REACTIONS (3)
  - CEREBROVASCULAR ACCIDENT [None]
  - HEMIPARESIS [None]
  - MUSCLE SPASMS [None]
